FAERS Safety Report 6438779-X (Version None)
Quarter: 2009Q4

REPORT INFORMATION
  Report Type: 
  Country: None (occurrence: None)
  Receive Date: 20091113
  Receipt Date: 20091103
  Transmission Date: 20100525
  Serious: No
  Sender: FDA-Public Use
  Company Number: CN-JNJFOC-20091100835

PATIENT
  Age: 57 Year
  Sex: Male

DRUGS (1)
  1. DURAGESIC-100 [Suspect]
     Indication: CANCER PAIN
     Dates: start: 20091001

REACTIONS (4)
  - DIZZINESS [None]
  - DRUG ADMINISTERED AT INAPPROPRIATE SITE [None]
  - VOMITING [None]
  - WRONG TECHNIQUE IN DRUG USAGE PROCESS [None]
